FAERS Safety Report 6764222-7 (Version None)
Quarter: 2010Q2

REPORT INFORMATION
  Report Type: 
  Country: None (occurrence: None)
  Receive Date: 20100610
  Receipt Date: 20100601
  Transmission Date: 20101027
  Serious: Yes (Other)
  Sender: FDA-Public Use
  Company Number: B0659654A

PATIENT
  Sex: Female

DRUGS (1)
  1. AVAMYS [Suspect]
     Indication: UPPER RESPIRATORY TRACT INFECTION
     Route: 045

REACTIONS (5)
  - CHORIORETINOPATHY [None]
  - EYE SWELLING [None]
  - METAMORPHOPSIA [None]
  - SCOTOMA [None]
  - VISUAL IMPAIRMENT [None]
